FAERS Safety Report 18652795 (Version 2)
Quarter: 2021Q1

REPORT INFORMATION
  Report Type: Other
  Country: CH (occurrence: CH)
  Receive Date: 20201223
  Receipt Date: 20210202
  Transmission Date: 20210419
  Serious: Yes (Other)
  Sender: FDA-Public Use
  Company Number: CH-ROCHE-2734876

PATIENT
  Age: 53 Year
  Sex: Male

DRUGS (1)
  1. CAPECITABINE. [Suspect]
     Active Substance: CAPECITABINE
     Indication: RECTAL CANCER
     Dosage: TWO DIVIDED DOSE
     Route: 048

REACTIONS (3)
  - Peripheral sensory neuropathy [Recovered/Resolved]
  - Herpes zoster meningitis [Recovered/Resolved]
  - Hemiparesis [Unknown]
